FAERS Safety Report 5886168-9 (Version None)
Quarter: 2008Q3

REPORT INFORMATION
  Report Type: 
  Country: None (occurrence: None)
  Receive Date: 20080917
  Receipt Date: 20080915
  Transmission Date: 20090109
  Serious: Yes (Hospitalization)
  Sender: FDA-Public Use
  Company Number: ES-BAYER-200821736GPV

PATIENT
  Age: 45 Year
  Sex: Male
  Weight: 74 kg

DRUGS (14)
  1. ZEVALIN [Suspect]
     Indication: B-CELL LYMPHOMA
     Route: 042
     Dates: start: 20080522, end: 20080522
  2. YTRACIS [Suspect]
     Indication: B-CELL LYMPHOMA
     Route: 042
  3. FLUDARABINE PHOSPHATE [Suspect]
     Indication: B-CELL LYMPHOMA
  4. RITUXIMAB [Suspect]
     Indication: B-CELL LYMPHOMA
     Dates: start: 20080514, end: 20080514
  5. RITUXIMAB [Suspect]
     Dates: start: 20080522, end: 20080522
  6. MELPHALAN [Suspect]
     Indication: B-CELL LYMPHOMA
  7. THIOTEPA [Suspect]
     Indication: B-CELL LYMPHOMA
  8. OMEPRAZOLE [Concomitant]
     Indication: GASTRITIS
     Route: 048
     Dates: start: 20080529
  9. CYCLOSPORINE [Concomitant]
     Indication: PROPHYLAXIS AGAINST GRAFT VERSUS HOST DISEASE
     Route: 048
     Dates: start: 20080529
  10. ACYCLOVIR [Concomitant]
     Indication: ANTIVIRAL PROPHYLAXIS
     Route: 048
     Dates: start: 20080529
  11. LORAZEPAM [Concomitant]
     Indication: INSOMNIA
     Route: 048
     Dates: start: 20080529
  12. MAGNESIUM LACTATE [Concomitant]
     Indication: HYPOMAGNESAEMIA
     Route: 048
     Dates: start: 20080619
  13. CIPROFLOXACIN HCL [Concomitant]
     Indication: ESCHERICHIA BACTERAEMIA
     Route: 048
     Dates: start: 20080626
  14. FOLIC ACID [Concomitant]
     Indication: BONE MARROW FAILURE
     Route: 048
     Dates: start: 20080604

REACTIONS (4)
  - ACUTE GRAFT VERSUS HOST DISEASE [None]
  - CYTOMEGALOVIRUS INFECTION [None]
  - PYREXIA [None]
  - RASH [None]
